FAERS Safety Report 5019219-4 (Version None)
Quarter: 2006Q2

REPORT INFORMATION
  Report Type: 
  Country: None (occurrence: None)
  Receive Date: 20060531
  Receipt Date: 20060516
  Transmission Date: 20061013
  Serious: Yes (Hospitalization)
  Sender: FDA-Public Use
  Company Number: 6022679F

PATIENT
  Age: 43 Year
  Sex: Female

DRUGS (5)
  1. NIASPAN [Suspect]
     Indication: LIPID METABOLISM DISORDER
     Dates: start: 20060413, end: 20060413
  2. PLAVIX [Concomitant]
  3. TAHOR [Concomitant]
  4. TEMERIT [Concomitant]
  5. COAPROVEL /GFR/ [Concomitant]

REACTIONS (5)
  - DYSPNOEA [None]
  - FLUSHING [None]
  - LOSS OF CONSCIOUSNESS [None]
  - MALAISE [None]
  - RASH ERYTHEMATOUS [None]
